FAERS Safety Report 5850791-8 (Version None)
Quarter: 2008Q3

REPORT INFORMATION
  Report Type: 
  Country: None (occurrence: None)
  Receive Date: 20080818
  Receipt Date: 20080813
  Transmission Date: 20090109
  Serious: Yes (Death)
  Sender: FDA-Public Use
  Company Number: 2007-01783

PATIENT
  Age: 53 Year
  Sex: Female
  Weight: 65 kg

DRUGS (6)
  1. VELCADE [Suspect]
     Indication: MULTIPLE MYELOMA
     Dosage: 1.30 MG/M2
     Dates: start: 20070423, end: 20070517
  2. DEXAMETHASONE TAB [Concomitant]
  3. NOLOTIL (DEXTROPROPOXYPHENE, METAMIZOLE MAGNESIUM) [Concomitant]
  4. VOLTAREN [Concomitant]
  5. FUROSEMIDE [Concomitant]
  6. URBASON (METHYLPREDNISOLONE) [Concomitant]

REACTIONS (3)
  - DISEASE PROGRESSION [None]
  - FACE OEDEMA [None]
  - PRURITUS [None]
